FAERS Safety Report 6523188-5 (Version None)
Quarter: 2009Q4

REPORT INFORMATION
  Report Type: 
  Country: None (occurrence: None)
  Receive Date: 20091222
  Receipt Date: 20091211
  Transmission Date: 20100525
  Serious: Yes (Hospitalization)
  Sender: FDA-Public Use
  Company Number: DSA_42203_2009

PATIENT
  Sex: Male

DRUGS (6)
  1. TIAZAC [Suspect]
     Indication: DRUG USE FOR UNKNOWN INDICATION
     Dosage: 240 MG QD
  2. DIOVAN [Concomitant]
  3. GEMFIBROZIL [Concomitant]
  4. LEVOTHYROXINE SODIUM [Concomitant]
  5. NADOLOL [Concomitant]
  6. NOVO-TRIAMZIDE [Concomitant]

REACTIONS (3)
  - BLOOD CHLORIDE DECREASED [None]
  - BLOOD POTASSIUM DECREASED [None]
  - BLOOD SODIUM DECREASED [None]
